FAERS Safety Report 8425534-4 (Version None)
Quarter: 2012Q2

REPORT INFORMATION
  Report Type: 
  Country: None (occurrence: None)
  Receive Date: 20120611
  Receipt Date: 20120604
  Transmission Date: 20120825
  Serious: Yes (Life-Threatening, Hospitalization)
  Sender: FDA-Public Use
  Company Number: US-CELGENEUS-163-21880-11071648

PATIENT
  Sex: Male
  Weight: 133.8 kg

DRUGS (6)
  1. REVLIMID [Suspect]
     Indication: MULTIPLE MYELOMA
     Dosage: 10 MILLIGRAM
     Route: 048
     Dates: start: 20080806, end: 20081201
  2. REVLIMID [Suspect]
     Dosage: 10 MILLIGRAM
     Route: 048
     Dates: start: 20120410
  3. WARFARIN [Concomitant]
     Route: 048
  4. PREGABALIN [Concomitant]
     Dosage: 25 GRAM
     Route: 048
  5. REVLIMID [Suspect]
     Dosage: 10 MILLIGRAM
     Route: 048
     Dates: start: 20090514, end: 20120131
  6. IMMUNE GLOBULIN INTRAVENOUS (HUMAN) [Concomitant]
     Dosage: 50 GRAM
     Route: 041
     Dates: start: 20120312

REACTIONS (3)
  - SEPSIS [None]
  - MULTIPLE MYELOMA [None]
  - LOCALISED INFECTION [None]
